FAERS Safety Report 22390877 (Version 3)
Quarter: 2023Q2

REPORT INFORMATION
  Report Type: Report from Study
  Country: CH (occurrence: CH)
  Receive Date: 20230601
  Receipt Date: 20230620
  Transmission Date: 20230722
  Serious: Yes (Hospitalization, Other)
  Sender: FDA-Public Use
  Company Number: CH-ABBVIE-5185393

PATIENT
  Sex: Female
  Weight: 42 kg

DRUGS (17)
  1. CARBIDOPA\LEVODOPA [Suspect]
     Active Substance: CARBIDOPA\LEVODOPA
     Indication: Parkinson^s disease
     Dosage: CRD: 3.0ML/H, CRN 2.5ML/H
     Route: 050
     Dates: start: 20221219
  2. CARBIDOPA\LEVODOPA [Suspect]
     Active Substance: CARBIDOPA\LEVODOPA
     Route: 050
     Dates: start: 20100623
  3. CARBIDOPA\LEVODOPA [Suspect]
     Active Substance: CARBIDOPA\LEVODOPA
     Dosage: MD: 3.0 ML, CRD: 2.8 ML/H, ED: 1.0 ML; CRN: 2.5 ML/H??FREQUENCY TEXT: 24H THERAPY
     Route: 050
     Dates: start: 20220601, end: 20221011
  4. CARBIDOPA\LEVODOPA [Suspect]
     Active Substance: CARBIDOPA\LEVODOPA
     Dosage: MD: 3.0 ML, CRD: 3.0 ML/H, ED: 1.0 ML; CRN: 2.5 ML/H??FREQUENCY TEXT: 24H THERAPY
     Route: 050
     Dates: start: 20221011, end: 20221117
  5. CARBIDOPA\LEVODOPA [Suspect]
     Active Substance: CARBIDOPA\LEVODOPA
     Dosage: MD: 3.0 ML, CRD: 3.0 ML/H, ED: 1.0 ML; CRN: 2.4 ML/H??FREQUENCY TEXT: 24H THERAPY/LAST ADMIN DATE...
     Route: 050
     Dates: start: 20221117
  6. DOMPERIDONE [Concomitant]
     Active Substance: DOMPERIDONE
     Indication: Nausea
     Dosage: 1 TABLET (10MG / TABLET)
     Dates: start: 20210624
  7. CYANOCOBALAMIN [Concomitant]
     Active Substance: CYANOCOBALAMIN
     Indication: Product used for unknown indication
     Dosage: CYANOCOBALAMINUM (VITAMIN B12 AMINO)
     Route: 058
     Dates: start: 20221219
  8. MOVICOL [Concomitant]
     Active Substance: POLYETHYLENE GLYCOL 3350\POTASSIUM CHLORIDE\SODIUM BICARBONATE\SODIUM CHLORIDE
     Indication: Product used for unknown indication
     Dosage: FREQUENCY TEXT: 1X/DAY. IN THE MORNING
     Dates: start: 20230318
  9. MORPHINE HYDROCHLORIDE [Concomitant]
     Active Substance: MORPHINE HYDROCHLORIDE
     Indication: Product used for unknown indication
     Dosage: 6 DROPS
     Dates: start: 20230605
  10. FENTANYL [Concomitant]
     Active Substance: FENTANYL
     Indication: Product used for unknown indication
     Dosage: 25 MCG/H
     Dates: start: 20230606
  11. PREDNISONE [Concomitant]
     Active Substance: PREDNISONE
     Indication: Product used for unknown indication
     Dosage: 1.5 TABLETS (5MG PER TABLET)
     Dates: start: 20221219
  12. Bulboid (Glycerol) [Concomitant]
     Indication: Constipation
     Dosage: IF NEEDED: MAX. 1X/DAY
     Dates: start: 20230528
  13. FLORINEF ACETATE [Concomitant]
     Active Substance: FLUDROCORTISONE ACETATE
     Indication: Product used for unknown indication
     Dosage: FREQUENCY TEXT: 1 TABLET EVERY MORNING AND EVENING?FLUDROCORTISONI ACETAS (FLORINEF)
     Dates: start: 20230207
  14. MORPHINE HYDROCHLORIDE [Concomitant]
     Active Substance: MORPHINE HYDROCHLORIDE
     Indication: Product used for unknown indication
     Dosage: FREQUENCY TEXT: MAX. UP TO 8X/DAY, MINIMUM INTERVAL 1H?MORPHINI HYDROCHLORIDUM TRIHYDRICUM (MORPH...
     Route: 058
     Dates: start: 20230528
  15. CHOLECALCIFEROL [Concomitant]
     Active Substance: CHOLECALCIFEROL
     Indication: Product used for unknown indication
     Dosage: 10 DROPS
     Dates: start: 20230508
  16. SODIUM PICOSULFATE [Concomitant]
     Active Substance: SODIUM PICOSULFATE
     Indication: Constipation
     Dosage: MAX. 5 DROPS
     Dates: start: 20230528
  17. ESOMEPRAZOLE [Concomitant]
     Active Substance: ESOMEPRAZOLE
     Indication: Product used for unknown indication
     Dosage: 1 TABLET (20MG/TABLET)
     Dates: start: 20221219

REACTIONS (10)
  - General physical health deterioration [Not Recovered/Not Resolved]
  - Unresponsive to stimuli [Not Recovered/Not Resolved]
  - Palliative care [Not Recovered/Not Resolved]
  - Enteral nutrition [Not Recovered/Not Resolved]
  - Malignant melanoma [Not Recovered/Not Resolved]
  - Device dislocation [Recovered/Resolved]
  - Unevaluable event [Not Recovered/Not Resolved]
  - Parkinson^s disease [Unknown]
  - Fall [Unknown]
  - Quadriplegia [Unknown]

NARRATIVE: CASE EVENT DATE: 20220101
